FAERS Safety Report 12719286 (Version 7)
Quarter: 2017Q2

REPORT INFORMATION
  Report Type: Spontaneous
  Country: US (occurrence: US)
  Receive Date: 20160907
  Receipt Date: 20170403
  Transmission Date: 20170830
  Serious: Yes (Death, Other)
  Sender: FDA-Public Use
  Company Number: US-ROCHE-1822489

PATIENT

DRUGS (2)
  1. XELODA [Suspect]
     Active Substance: CAPECITABINE
     Indication: NEOPLASM MALIGNANT
     Route: 048
  2. 5-FLUOROURACIL [Suspect]
     Active Substance: FLUOROURACIL
     Indication: NEOPLASM MALIGNANT
     Route: 042

REACTIONS (19)
  - Coma [Recovered/Resolved]
  - Incorrect dose administered [Unknown]
  - Device malfunction [Unknown]
  - Electrocardiogram abnormal [Recovered/Resolved]
  - Mental status changes [Recovered/Resolved]
  - Mucosal inflammation [Recovered/Resolved]
  - Dose calculation error [Unknown]
  - Chest pain [Recovered/Resolved]
  - Overdose [Unknown]
  - Cardiac arrest [Recovered/Resolved]
  - Left ventricular dysfunction [Unknown]
  - Wrong device used [Unknown]
  - Encephalopathy [Recovered/Resolved]
  - Death [Fatal]
  - Ejection fraction decreased [Recovered/Resolved]
  - Cardiomyopathy [Unknown]
  - Device computer issue [Unknown]
  - Ataxia [Recovered/Resolved]
  - Leukopenia [Recovered/Resolved]
